FAERS Safety Report 9656396 (Version 1)
Quarter: 2013Q4

REPORT INFORMATION
  Report Type: Spontaneous
  Country: BR (occurrence: BR)
  Receive Date: 20131030
  Receipt Date: 20131030
  Transmission Date: 20140711
  Serious: Yes (Other)
  Sender: FDA-Public Use
  Company Number: BR-JNJFOC-20131014811

PATIENT
  Sex: Female
  Weight: 77.8 kg

DRUGS (6)
  1. SIMPONI [Suspect]
     Indication: RHEUMATOID ARTHRITIS
     Route: 058
     Dates: start: 201305, end: 201309
  2. PRELONE [Suspect]
     Indication: RHEUMATOID ARTHRITIS
     Route: 065
  3. PRELONE [Suspect]
     Indication: RHEUMATOID ARTHRITIS
     Route: 065
  4. PRELONE [Suspect]
     Indication: RHEUMATOID ARTHRITIS
     Route: 065
  5. SERTRALINE [Concomitant]
     Indication: DEPRESSION
     Route: 065
     Dates: start: 2011
  6. RIVOTRIL [Concomitant]
     Indication: RELAXATION THERAPY
     Route: 065
     Dates: start: 2011

REACTIONS (3)
  - Weight increased [Unknown]
  - Swelling [Unknown]
  - Pain [Unknown]
